FAERS Safety Report 25272031 (Version 1)
Quarter: 2025Q2

REPORT INFORMATION
  Report Type: Spontaneous
  Country: US (occurrence: US)
  Receive Date: 20250506
  Receipt Date: 20250506
  Transmission Date: 20250717
  Serious: No
  Sender: AMGEN
  Company Number: US-AMGEN-USASP2025086791

PATIENT
  Age: 64 Year
  Sex: Female

DRUGS (2)
  1. ENBREL [Suspect]
     Active Substance: ETANERCEPT
     Indication: Rheumatoid arthritis
     Dosage: 50 MILLIGRAM, QWK
     Route: 065
     Dates: end: 2025
  2. ENBREL [Suspect]
     Active Substance: ETANERCEPT
     Dosage: 50 MILLIGRAM, QWK
     Route: 065
     Dates: start: 2025

REACTIONS (4)
  - Surgery [Unknown]
  - Device difficult to use [Unknown]
  - Accidental exposure to product [Unknown]
  - Drug dose omission by device [Unknown]

NARRATIVE: CASE EVENT DATE: 20250101
